FAERS Safety Report 14123969 (Version 5)
Quarter: 2018Q2

REPORT INFORMATION
  Report Type: Spontaneous
  Country: IT (occurrence: IT)
  Receive Date: 20171025
  Receipt Date: 20180531
  Transmission Date: 20180711
  Serious: Yes (Disabling)
  Sender: FDA-Public Use
  Company Number: IT-PFIZER INC-2017459436

PATIENT
  Age: 52 Year
  Sex: Female
  Weight: 85 kg

DRUGS (4)
  1. CIPROFLOXACIN KABI /00697203/ [Suspect]
     Active Substance: CIPROFLOXACIN LACTATE
     Indication: ANTIBIOTIC PROPHYLAXIS
     Dosage: 200 MG, TOTAL
     Route: 042
     Dates: start: 20171005, end: 20171005
  2. ROCURONIO KABI [Suspect]
     Active Substance: ROCURONIUM BROMIDE
     Indication: GENERAL ANAESTHESIA
     Dosage: 60 MG, TOTAL
     Route: 042
     Dates: start: 20171005, end: 20171005
  3. DIPRIVAN [Suspect]
     Active Substance: PROPOFOL
     Indication: GENERAL ANAESTHESIA
     Dosage: 150 MG, TOTAL
     Route: 042
     Dates: start: 20171005, end: 20171005
  4. FENTANEST [Suspect]
     Active Substance: FENTANYL CITRATE
     Indication: GENERAL ANAESTHESIA
     Dosage: 0.3 MG, TOTAL
     Route: 042
     Dates: start: 20171005, end: 20171005

REACTIONS (4)
  - Hypotension [Not Recovered/Not Resolved]
  - Capnogram abnormal [Not Recovered/Not Resolved]
  - Cardiac arrest [Not Recovered/Not Resolved]
  - Oxygen saturation decreased [Not Recovered/Not Resolved]

NARRATIVE: CASE EVENT DATE: 20171005
